FAERS Safety Report 13026387 (Version 2)
Quarter: 2016Q4

REPORT INFORMATION
  Report Type: Report from Study
  Country: US (occurrence: US)
  Receive Date: 20161214
  Receipt Date: 20161220
  Transmission Date: 20170207
  Serious: Yes (Death, Hospitalization, Other)
  Sender: FDA-Public Use
  Company Number: US-GILEAD-2016-0247511

PATIENT
  Age: 41 Year
  Sex: Female

DRUGS (3)
  1. COUMADINE [Concomitant]
     Active Substance: WARFARIN SODIUM
  2. REMODULIN [Concomitant]
     Active Substance: TREPROSTINIL
  3. AMBRISENTAN [Suspect]
     Active Substance: AMBRISENTAN
     Indication: PRODUCT USED FOR UNKNOWN INDICATION
     Dosage: 10 MG, QD
     Route: 065
     Dates: start: 20081009

REACTIONS (4)
  - Death [Fatal]
  - Liver function test abnormal [Unknown]
  - Abdominal pain [Unknown]
  - Back pain [Unknown]

NARRATIVE: CASE EVENT DATE: 20161214
